FAERS Safety Report 9520803 (Version 1)
Quarter: 2013Q3

REPORT INFORMATION
  Report Type: Spontaneous
  Country: PL (occurrence: None)
  Receive Date: 20130911
  Receipt Date: 20130911
  Transmission Date: 20140515
  Serious: Yes (Death)
  Sender: FDA-Public Use
  Company Number: 2013P1018981

PATIENT
  Age: 48 Year
  Sex: Male

DRUGS (3)
  1. RIFAMPIN [Suspect]
     Indication: PULMONARY TUBERCULOSIS
  2. ISONIAZID [Concomitant]
  3. PYRAZINAMIDE [Concomitant]

REACTIONS (2)
  - Clostridium difficile infection [None]
  - Neurological symptom [None]
